FAERS Safety Report 18223416 (Version 1)
Quarter: 2020Q3

REPORT INFORMATION
  Report Type: Spontaneous
  Country: US (occurrence: US)
  Receive Date: 20200902
  Receipt Date: 20200902
  Transmission Date: 20201103
  Serious: Yes (Other)
  Sender: FDA-Public Use
  Company Number: US-BAUSCH-BL-2020-024758

PATIENT
  Age: 75 Year
  Sex: Male
  Weight: 57.7 kg

DRUGS (3)
  1. ACYCLOVIR. [Suspect]
     Active Substance: ACYCLOVIR
     Indication: VARICELLA ZOSTER VIRUS INFECTION
     Dosage: INITIAL DOSE, ON DAY 3 OF ADMISSION
     Route: 042
  2. CEFEPIME [Concomitant]
     Active Substance: CEFEPIME HYDROCHLORIDE
     Indication: MEDIASTINITIS
  3. ACYCLOVIR. [Suspect]
     Active Substance: ACYCLOVIR
     Dosage: REDUCTION
     Route: 042

REACTIONS (1)
  - Neurotoxicity [Recovered/Resolved]
